FAERS Safety Report 6802741-5 (Version None)
Quarter: 2010Q2

REPORT INFORMATION
  Report Type: 
  Country: None (occurrence: None)
  Receive Date: 20100628
  Receipt Date: 20100616
  Transmission Date: 20101027
  Serious: Yes (Hospitalization)
  Sender: FDA-Public Use
  Company Number: CZ-ELI_LILLY_AND_COMPANY-CZ201006000894

PATIENT
  Sex: Female
  Weight: 61 kg

DRUGS (7)
  1. SOMATROPIN [Suspect]
     Indication: GROWTH HORMONE DEFICIENCY
     Dosage: 0.4 MG, DAILY (1/D)
     Route: 058
     Dates: start: 20000307
  2. CALCICHEW [Concomitant]
     Indication: OSTEOPOROSIS
     Dosage: UNK, UNK
     Route: 048
     Dates: start: 20030101
  3. ACETYLSALICYLIC ACID W/DIPYRIDAMOLE [Concomitant]
  4. HYDROCORTISONE [Concomitant]
     Indication: HYPOPITUITARISM
     Dosage: 15 MG, UNK
     Route: 048
     Dates: start: 19910515
  5. LEVOTHYROXINE SODIUM [Concomitant]
     Indication: HYPOTHYROIDISM
     Dosage: 50 UG, DAILY (1/D)
     Route: 048
     Dates: start: 19910515
  6. CHOLECALCIFEROL [Concomitant]
     Indication: OSTEOPOROSIS
  7. LAKEA [Concomitant]
     Indication: HYPERTENSION
     Dosage: 50 MG, DAILY (1/D)
     Route: 048
     Dates: start: 20030101

REACTIONS (2)
  - ISCHAEMIC STROKE [None]
  - TRANSIENT ISCHAEMIC ATTACK [None]
